FAERS Safety Report 11377619 (Version 1)
Quarter: 2015Q3

REPORT INFORMATION
  Report Type: Spontaneous
  Country: US (occurrence: US)
  Receive Date: 20150811
  Receipt Date: 20150811
  Transmission Date: 20151125
  Serious: No
  Sender: FDA-Public Use
  Company Number: US-ELI_LILLY_AND_COMPANY-US200904003888

PATIENT
  Sex: Female

DRUGS (2)
  1. HUMULIN N [Suspect]
     Active Substance: INSULIN HUMAN
     Dosage: UNK, DAILY (1/D)
     Dates: start: 200903
  2. SYNTHROID [Concomitant]
     Active Substance: LEVOTHYROXINE SODIUM

REACTIONS (6)
  - Injection site erythema [Unknown]
  - Injection site nodule [Unknown]
  - Injection site pain [Unknown]
  - Injection site extravasation [Unknown]
  - Exposure during pregnancy [Unknown]
  - Injection site pain [Unknown]

NARRATIVE: CASE EVENT DATE: 200903
